FAERS Safety Report 6738809-1 (Version None)
Quarter: 2010Q2

REPORT INFORMATION
  Report Type: 
  Country: None (occurrence: None)
  Receive Date: 20100524
  Receipt Date: 20100514
  Transmission Date: 20101027
  Serious: Yes (Hospitalization)
  Sender: FDA-Public Use
  Company Number: TR-B.I. PHARMACEUTICALS,INC./RIDGEFIELD-2010-DE-02704GD

PATIENT
  Age: 33 Year
  Sex: Male

DRUGS (4)
  1. PRAMIPEXOLE DIHYDROCHLORIDE [Suspect]
     Indication: PARKINSON'S DISEASE
     Dosage: 3 MG
  2. LEVODOPA [Suspect]
     Indication: PARKINSON'S DISEASE
     Dosage: 500 MG
  3. BIPERIDEN HYDROCHLORIDE TAB [Suspect]
     Indication: PARKINSON'S DISEASE
     Dosage: 3 MG
  4. RASAGILINE [Suspect]
     Indication: PARKINSON'S DISEASE
     Dosage: 1 MG

REACTIONS (2)
  - DEPRESSION [None]
  - PSYCHOTIC DISORDER [None]
